FAERS Safety Report 7462658-2 (Version None)
Quarter: 2011Q2

REPORT INFORMATION
  Report Type: 
  Country: None (occurrence: None)
  Receive Date: 20110506
  Receipt Date: 20110428
  Transmission Date: 20111010
  Serious: Yes (Hospitalization, Other)
  Sender: FDA-Public Use
  Company Number: PHFR2011IE02059

PATIENT
  Sex: Male

DRUGS (4)
  1. CLOZARIL [Suspect]
     Indication: SCHIZOPHRENIA
     Dosage: 450 MG
     Route: 048
     Dates: start: 20030101
  2. CLOZARIL [Suspect]
     Dosage: 425 MG, QD
     Route: 048
     Dates: start: 20110404
  3. VALPROATE SODIUM [Concomitant]
     Indication: CONVULSION
     Dosage: 800 MG, UNK
     Route: 048
     Dates: start: 20110401
  4. CLOZARIL [Suspect]
     Dosage: 450 MG, QD
     Route: 048
     Dates: start: 20081107, end: 20110404

REACTIONS (6)
  - ANTIPSYCHOTIC DRUG LEVEL INCREASED [None]
  - LOSS OF CONSCIOUSNESS [None]
  - CONVULSION [None]
  - UPPER LIMB FRACTURE [None]
  - TONIC CLONIC MOVEMENTS [None]
  - TONGUE BITING [None]
